FAERS Safety Report 22387020 (Version 1)
Quarter: 2023Q2

REPORT INFORMATION
  Report Type: Spontaneous
  Country: US (occurrence: US)
  Receive Date: 20230531
  Receipt Date: 20230531
  Transmission Date: 20230721
  Serious: No
  Sender: FDA-Public Use
  Company Number: US-STRIDES ARCOLAB LIMITED-2023SP006649

PATIENT
  Age: 55 Year
  Sex: Female

DRUGS (3)
  1. METHOTREXATE [Suspect]
     Active Substance: METHOTREXATE
     Indication: Oligoarthritis
     Dosage: 25 MILLIGRAM (WEEKLY)
     Route: 065
  2. PREDNISOLONE [Suspect]
     Active Substance: PREDNISOLONE
     Indication: Oligoarthritis
     Dosage: 10 MILLIGRAM (DAILY)
     Route: 065
  3. ADALIMUMAB [Suspect]
     Active Substance: ADALIMUMAB
     Indication: Oligoarthritis
     Dosage: UNK
     Route: 065

REACTIONS (3)
  - Affect lability [Unknown]
  - Therapy partial responder [Unknown]
  - Drug ineffective [Unknown]
